FAERS Safety Report 24373144 (Version 1)
Quarter: 2024Q3

REPORT INFORMATION
  Report Type: Spontaneous
  Country: US (occurrence: US)
  Receive Date: 20240927
  Receipt Date: 20240927
  Transmission Date: 20241016
  Serious: No
  Sender: Thea Pharma
  Company Number: US-THEA-2023001735

PATIENT
  Age: 69 Year
  Sex: Female

DRUGS (1)
  1. AZASITE [Suspect]
     Active Substance: AZITHROMYCIN MONOHYDRATE
     Indication: Eye infection
     Dosage: BOTH EYES
     Route: 047
     Dates: start: 20230905, end: 202309

REACTIONS (2)
  - Lacrimation increased [Recovering/Resolving]
  - Eye irritation [Recovering/Resolving]

NARRATIVE: CASE EVENT DATE: 20230907
